FAERS Safety Report 8603024-3 (Version None)
Quarter: 2012Q3

REPORT INFORMATION
  Report Type: 
  Country: None (occurrence: None)
  Receive Date: 20120817
  Receipt Date: 20120605
  Transmission Date: 20120928
  Serious: No
  Sender: FDA-Public Use
  Company Number: US-GLAXOSMITHKLINE-A0980622A

PATIENT
  Age: 24 Year
  Sex: Male
  Weight: 58.2 kg

DRUGS (7)
  1. BENADRYL [Concomitant]
     Dosage: 25MG UNKNOWN
     Route: 048
  2. NEURONTIN [Concomitant]
     Dosage: 100MG UNKNOWN
     Route: 048
  3. VITAMIN D [Concomitant]
     Dosage: 400MG UNKNOWN
     Route: 048
  4. VOTRIENT [Suspect]
     Indication: PRODUCT USED FOR UNKNOWN INDICATION
     Dosage: 800MG PER DAY
     Route: 048
  5. OXYCODONE HCL [Concomitant]
     Dosage: 5MG UNKNOWN
     Route: 048
  6. ZOFRAN [Concomitant]
     Dosage: 4MG UNKNOWN
     Route: 048
  7. COLACE [Concomitant]
     Dosage: 100MG UNKNOWN
     Route: 048

REACTIONS (3)
  - MUSCLE SPASMS [None]
  - NAUSEA [None]
  - EPISTAXIS [None]
